FAERS Safety Report 5256983-3 (Version None)
Quarter: 2007Q1

REPORT INFORMATION
  Report Type: 
  Country: None (occurrence: None)
  Receive Date: 20070305
  Receipt Date: 20070305
  Transmission Date: 20070707
  Serious: Yes (Life-Threatening, Hospitalization)
  Sender: FDA-Public Use
  Company Number: None

PATIENT
  Age: 32 Year
  Sex: Male
  Weight: 70 kg

DRUGS (10)
  1. LOVENOX [Suspect]
     Indication: THROMBOSIS PROPHYLAXIS
     Dosage: 40MG DAILY SQ
     Route: 058
     Dates: start: 20070114, end: 20070117
  2. FENTANYL [Concomitant]
  3. NEURONTIN [Concomitant]
  4. BACLOFEN [Concomitant]
  5. PROTONIX [Concomitant]
  6. COLACE [Concomitant]
  7. SENNA [Concomitant]
  8. FERROUS SULFATE [Concomitant]
  9. FOLIC ACID [Concomitant]
  10. PRIMAXIN [Concomitant]

REACTIONS (5)
  - ANTIBODY TEST POSITIVE [None]
  - CATHETER SITE HAEMORRHAGE [None]
  - ECCHYMOSIS [None]
  - HEPARIN-INDUCED THROMBOCYTOPENIA TEST [None]
  - POST PROCEDURAL HAEMORRHAGE [None]
